FAERS Safety Report 9919121 (Version 1)
Quarter: 2014Q1

REPORT INFORMATION
  Report Type: Spontaneous
  Country: US (occurrence: US)
  Receive Date: 20140224
  Receipt Date: 20140224
  Transmission Date: 20141002
  Serious: No
  Sender: FDA-Public Use
  Company Number: US-PFIZER INC-2014052780

PATIENT
  Sex: Male

DRUGS (2)
  1. PRISTIQ [Suspect]
     Indication: DEPRESSION
     Dosage: 150 MG, 1X/DAY
     Dates: end: 201402
  2. PRISTIQ [Suspect]
     Dosage: 150 MG, ALTERNATE DAY
     Dates: start: 201402

REACTIONS (2)
  - Dizziness [Unknown]
  - Nausea [Unknown]
